FAERS Safety Report 13916352 (Version 1)
Quarter: 2017Q3

REPORT INFORMATION
  Report Type: Spontaneous
  Country: BE (occurrence: BE)
  Receive Date: 20170829
  Receipt Date: 20170829
  Transmission Date: 20171127
  Serious: Yes (Other)
  Sender: FDA-Public Use
  Company Number: BE-UCBSA-2017033363

PATIENT
  Sex: Female

DRUGS (1)
  1. KEPPRA [Suspect]
     Active Substance: LEVETIRACETAM
     Indication: EPILEPSY
     Dosage: UNK

REACTIONS (2)
  - Drug ineffective [Unknown]
  - Thyroid disorder [Unknown]
